FAERS Safety Report 18146334 (Version 4)
Quarter: 2021Q1

REPORT INFORMATION
  Report Type: Spontaneous
  Country: JP (occurrence: JP)
  Receive Date: 20200813
  Receipt Date: 20210303
  Transmission Date: 20210419
  Serious: Yes (Death, Hospitalization, Other)
  Sender: FDA-Public Use
  Company Number: JP-AMGEN-JPNSP2020110296

PATIENT
  Age: 64 Year
  Sex: Female
  Weight: 54 kg

DRUGS (18)
  1. DECADRON [Suspect]
     Active Substance: DEXAMETHASONE
     Dosage: 0.5 MILLIGRAM
     Route: 065
     Dates: start: 20200625, end: 20200627
  2. URSODEOXYCHOLIC ACID [Concomitant]
     Active Substance: URSODIOL
     Indication: HEPATIC STEATOSIS
  3. BLINCYTO [Suspect]
     Active Substance: BLINATUMOMAB
     Dosage: 28 MICROGRAM, QD
     Route: 041
     Dates: start: 20200608, end: 20200628
  4. BLINCYTO [Suspect]
     Active Substance: BLINATUMOMAB
     Dosage: 28 MICROGRAM, QD
     Route: 041
     Dates: start: 20200713, end: 20200729
  5. LEVOFLOXACIN HEMIHYDRATE [Concomitant]
     Active Substance: LEVOFLOXACIN
     Indication: PROPHYLAXIS
     Dosage: 500 MILLIGRAM, QD
     Dates: start: 20200618, end: 20200624
  6. DEXART [Concomitant]
     Active Substance: DEXAMETHASONE SODIUM PHOSPHATE
     Indication: PROPHYLAXIS
     Dosage: UNK
     Dates: start: 20200601
  7. DECADRON [Suspect]
     Active Substance: DEXAMETHASONE
     Dosage: 0.5 MILLIGRAMX 2 TABLET
     Route: 065
     Dates: start: 20200621, end: 20200624
  8. FEBURIC [Concomitant]
     Active Substance: FEBUXOSTAT
     Indication: PROPHYLAXIS
     Dosage: 20 MILLIGRAM, QD
     Dates: start: 20200601, end: 20200605
  9. DECADRON [Suspect]
     Active Substance: DEXAMETHASONE
     Indication: PROPHYLAXIS
     Dosage: 0.5 MILLIGRAMX3TABLETS
     Route: 065
     Dates: start: 20200618, end: 20200620
  10. TAZOPIPE [Concomitant]
     Active Substance: PIPERACILLIN SODIUM\TAZOBACTAM SODIUM
     Indication: FEBRILE NEUTROPENIA
     Dosage: 4.5 GRAM, TID
     Dates: start: 20200614, end: 20200617
  11. FAMOTIDINE. [Concomitant]
     Active Substance: FAMOTIDINE
     Indication: PROPHYLAXIS
     Dosage: 20 MILLIGRAM, QD
     Dates: start: 201909
  12. BLINCYTO [Suspect]
     Active Substance: BLINATUMOMAB
     Indication: ACUTE LYMPHOCYTIC LEUKAEMIA RECURRENT
     Dosage: 9 MICROGRAM, QD
     Route: 041
     Dates: start: 20200601, end: 20200607
  13. REBAMIPIDE [Concomitant]
     Active Substance: REBAMIPIDE
     Indication: PROPHYLAXIS
     Dosage: 100 MILLIGRAM, TID
     Dates: start: 201909
  14. DAIPHEN [Concomitant]
     Active Substance: SULFAMETHOXAZOLE\TRIMETHOPRIM
     Indication: PROPHYLAXIS
     Dosage: 1 DOSAGE FORM (1 TABLET), 3 TIMES/WK
     Dates: start: 201909
  15. URSODEOXYCHOLIC ACID [Concomitant]
     Active Substance: URSODIOL
     Indication: ACUTE LYMPHOCYTIC LEUKAEMIA
     Dosage: 200 MILLIGRAM, TID
     Dates: start: 20200302
  16. ITRACONAZOLE. [Concomitant]
     Active Substance: ITRACONAZOLE
     Indication: PROPHYLAXIS
     Dosage: 20 MILLILITER, QD
     Dates: start: 20200605, end: 20200701
  17. SOLDEM [Concomitant]
     Active Substance: DEXTROSE\POTASSIUM CHLORIDE\SODIUM CHLORIDE\SODIUM LACTATE
     Dosage: 500 MILLILITER, BID
     Dates: start: 20200528
  18. CEFEPIME [Concomitant]
     Active Substance: CEFEPIME HYDROCHLORIDE
     Indication: FEBRILE NEUTROPENIA
     Dosage: 2 GRAM, BID
     Dates: start: 20200528, end: 20200604

REACTIONS (5)
  - Unevaluable event [Unknown]
  - Thrombocytopenia [Not Recovered/Not Resolved]
  - Acute lymphocytic leukaemia recurrent [Fatal]
  - Cytomegalovirus enterocolitis [Recovered/Resolved]
  - Lymphocyte count decreased [Not Recovered/Not Resolved]

NARRATIVE: CASE EVENT DATE: 20200602
